FAERS Safety Report 5714133-0 (Version None)
Quarter: 2008Q2

REPORT INFORMATION
  Report Type: 
  Country: None (occurrence: None)
  Receive Date: 20080423
  Receipt Date: 20080417
  Transmission Date: 20081010
  Serious: Yes (Hospitalization)
  Sender: FDA-Public Use
  Company Number: PHHO2007DE06718

PATIENT
  Age: 64 Year
  Sex: Male
  Weight: 80 kg

DRUGS (6)
  1. TASIGNA [Suspect]
     Indication: CHRONIC MYELOID LEUKAEMIA
     Dosage: 400 MG, QD
     Route: 048
     Dates: start: 20050505
  2. ASPIRIN [Concomitant]
  3. EZETROL [Concomitant]
  4. PLAVIX [Concomitant]
  5. VESDIL [Concomitant]
  6. SIMVASTATIN [Concomitant]

REACTIONS (7)
  - ANGINA PECTORIS [None]
  - ANGIOPLASTY [None]
  - CATHETERISATION CARDIAC [None]
  - CHEST PAIN [None]
  - CORONARY ARTERY STENOSIS [None]
  - MYOCARDIAL ISCHAEMIA [None]
  - STENT PLACEMENT [None]
